FAERS Safety Report 10741325 (Version 1)
Quarter: 2015Q1

REPORT INFORMATION
  Report Type: Spontaneous
  Country: AU (occurrence: AU)
  Receive Date: 20150127
  Receipt Date: 20150127
  Transmission Date: 20150721
  Serious: Yes (Death)
  Sender: FDA-Public Use
  Company Number: AU-BAYER-2015-011631

PATIENT
  Age: 67 Year
  Sex: Male

DRUGS (9)
  1. BECOTIDE [Suspect]
     Active Substance: BECLOMETHASONE DIPROPIONATE
     Indication: ILL-DEFINED DISORDER
     Dosage: UNK
     Dates: start: 19910701
  2. ADALAT [Suspect]
     Active Substance: NIFEDIPINE
     Indication: ILL-DEFINED DISORDER
     Dosage: UNK
     Dates: start: 19940906, end: 19941007
  3. CELESTONE [Suspect]
     Active Substance: BETAMETHASONE
     Indication: ILL-DEFINED DISORDER
     Dosage: UNK
     Dates: start: 19920701
  4. METICORTEN [Suspect]
     Active Substance: PREDNISONE
     Indication: ILL-DEFINED DISORDER
     Dosage: UNK
     Dates: start: 19760701
  5. IMDUR [Suspect]
     Active Substance: ISOSORBIDE MONONITRATE
     Indication: MYOCARDIAL ISCHAEMIA
  6. IMDUR [Suspect]
     Active Substance: ISOSORBIDE MONONITRATE
     Indication: ILL-DEFINED DISORDER
     Dosage: 60 MG, QD
     Route: 048
     Dates: start: 19930511, end: 19941027
  7. ISORDIL [Suspect]
     Active Substance: ISOSORBIDE DINITRATE
     Indication: ILL-DEFINED DISORDER
     Dosage: UNK
     Dates: start: 19870701
  8. ALBUTEROL. [Suspect]
     Active Substance: ALBUTEROL
     Indication: ILL-DEFINED DISORDER
     Dosage: UNK
     Dates: start: 19760701
  9. WHITFIELDS [Suspect]
     Active Substance: BENZOIC ACID\SALICYLIC ACID
     Indication: ILL-DEFINED DISORDER
     Dosage: UNK
     Dates: start: 19930602

REACTIONS (5)
  - Dyspnoea [None]
  - Aplastic anaemia [Fatal]
  - Headache [None]
  - Dizziness [None]
  - Fatigue [None]

NARRATIVE: CASE EVENT DATE: 19941003
